FAERS Safety Report 4490914-9 (Version None)
Quarter: 2004Q4

REPORT INFORMATION
  Report Type: 
  Country: None (occurrence: None)
  Receive Date: 20041027
  Receipt Date: 20041019
  Transmission Date: 20050328
  Serious: Yes (Hospitalization)
  Sender: FDA-Public Use
  Company Number: 163-20785-04080608

PATIENT
  Age: 39 Year
  Sex: Female

DRUGS (1)
  1. THALOMID [Suspect]
     Indication: SARCOIDOSIS
     Dosage: 100 MG, QHS, ORAL
     Route: 048
     Dates: start: 20020115

REACTIONS (1)
  - SQUAMOUS CELL CARCINOMA OF THE CERVIX [None]
